FAERS Safety Report 15041593 (Version 1)
Quarter: 2018Q2

REPORT INFORMATION
  Report Type: Spontaneous
  Country: GB (occurrence: GB)
  Receive Date: 20180621
  Receipt Date: 20180621
  Transmission Date: 20180711
  Serious: Yes (Life-Threatening, Hospitalization)
  Sender: FDA-Public Use
  Company Number: GB-TEVA-2018-GB-908199

PATIENT
  Age: 92 Year
  Sex: Female
  Weight: 59.9 kg

DRUGS (1)
  1. CIPROFLOXACIN. [Suspect]
     Active Substance: CIPROFLOXACIN
     Indication: URINARY TRACT INFECTION
     Dosage: 800 MILLIGRAM DAILY;
     Route: 042
     Dates: start: 20180411, end: 20180413

REACTIONS (1)
  - Neutropenia [Unknown]
